FAERS Safety Report 6115577-8 (Version None)
Quarter: 2009Q1

REPORT INFORMATION
  Report Type: 
  Country: None (occurrence: None)
  Receive Date: 20090313
  Receipt Date: 20090304
  Transmission Date: 20090719
  Serious: Yes (Other)
  Sender: FDA-Public Use
  Company Number: DE-JNJFOC-20090300707

PATIENT
  Age: 26 Year
  Sex: Male
  Weight: 80 kg

DRUGS (1)
  1. INVEGA [Suspect]
     Indication: SCHIZOPHRENIFORM DISORDER
     Route: 048

REACTIONS (1)
  - LIVER DISORDER [None]
